FAERS Safety Report 8664970 (Version 2)
Quarter: 2013Q4

REPORT INFORMATION
  Report Type: Spontaneous
  Country: US (occurrence: US)
  Receive Date: 20120714
  Receipt Date: 20131101
  Transmission Date: 20140711
  Serious: No
  Sender: FDA-Public Use
  Company Number: US-009507513-1207USA002499

PATIENT
  Age: 27 Year
  Sex: Female
  Weight: 49.89 kg

DRUGS (1)
  1. NUVARING [Suspect]
     Indication: CONTRACEPTION
     Dosage: UNK, UNKNOWN
     Route: 067
     Dates: start: 201204, end: 20120707

REACTIONS (4)
  - Hypoaesthesia [Recovering/Resolving]
  - Weight increased [Recovering/Resolving]
  - Nausea [Recovering/Resolving]
  - Mood swings [Recovering/Resolving]
